FAERS Safety Report 17308145 (Version 7)
Quarter: 2021Q3

REPORT INFORMATION
  Report Type: Report from Study
  Country: CA (occurrence: CA)
  Receive Date: 20200123
  Receipt Date: 20210819
  Transmission Date: 20211014
  Serious: Yes (Other)
  Sender: FDA-Public Use
  Company Number: PHHY2019CA223937

PATIENT
  Age: 57 Year
  Sex: Female

DRUGS (5)
  1. AMOXI CLAV [Concomitant]
     Active Substance: AMOXICILLIN\CLAVULANATE POTASSIUM
     Indication: PRODUCT USED FOR UNKNOWN INDICATION
     Dosage: UNK (COMPLETED 14 DAYS)
     Route: 065
  2. TETANUS TOXOID ADSORBED (VACCINE) [Concomitant]
     Active Substance: CLOSTRIDIUM TETANI TOXOID ANTIGEN (FORMALDEHYDE INACTIVATED)
     Indication: PRODUCT USED FOR UNKNOWN INDICATION
     Dosage: UNK
     Route: 065
  3. COSENTYX [Suspect]
     Active Substance: SECUKINUMAB
     Dosage: 300 MG, QMO
     Route: 058
     Dates: start: 2020
  4. ATORVASTATIN [Concomitant]
     Active Substance: ATORVASTATIN
     Indication: BLOOD CHOLESTEROL INCREASED
     Dosage: 10 UNK, UNK
     Route: 065
  5. COSENTYX [Suspect]
     Active Substance: SECUKINUMAB
     Indication: PSORIATIC ARTHROPATHY
     Dosage: 450 MG, QMO
     Route: 058
     Dates: start: 20190920

REACTIONS (22)
  - Illness [Unknown]
  - Animal bite [Recovering/Resolving]
  - C-reactive protein increased [Unknown]
  - Nasopharyngitis [Unknown]
  - Electrocardiogram QT prolonged [Unknown]
  - Joint swelling [Unknown]
  - Dizziness [Unknown]
  - Sinusitis [Unknown]
  - Pyrexia [Unknown]
  - Injection site pain [Unknown]
  - Movement disorder [Unknown]
  - Wound infection [Recovering/Resolving]
  - Oropharyngeal pain [Unknown]
  - Lymphadenopathy [Unknown]
  - Dyspepsia [Unknown]
  - Product dose omission issue [Unknown]
  - Psoriatic arthropathy [Not Recovered/Not Resolved]
  - Musculoskeletal stiffness [Unknown]
  - Haematoma [Unknown]
  - Lower respiratory tract infection [Unknown]
  - Peripheral swelling [Unknown]
  - Pain [Unknown]

NARRATIVE: CASE EVENT DATE: 20190920
